FAERS Safety Report 4765822-6 (Version None)
Quarter: 2005Q3

REPORT INFORMATION
  Report Type: 
  Country: None (occurrence: None)
  Receive Date: 20050912
  Receipt Date: 20050902
  Transmission Date: 20060218
  Serious: Yes (Other)
  Sender: FDA-Public Use
  Company Number: PHFR2005GB02960

PATIENT
  Sex: Female

DRUGS (2)
  1. ACETAMINOPHEN W/ CODEINE [Suspect]
     Route: 065
  2. VOLTAROL [Suspect]
     Indication: BACK DISORDER
     Route: 065

REACTIONS (1)
  - DEAFNESS [None]
